FAERS Safety Report 12505967 (Version 1)
Quarter: 2016Q2

REPORT INFORMATION
  Report Type: Report from Study
  Country: DE (occurrence: DE)
  Receive Date: 20160628
  Receipt Date: 20160628
  Transmission Date: 20160815
  Serious: Yes (Life-Threatening, Hospitalization, Other)
  Sender: FDA-Public Use
  Company Number: DE-BRISTOL-MYERS SQUIBB COMPANY-BMS-2016-047251

PATIENT
  Age: 57 Year
  Sex: Male
  Weight: 84 kg

DRUGS (10)
  1. ETOPOSIDE PHOSPHATE [Suspect]
     Active Substance: ETOPOSIDE PHOSPHATE
     Indication: PRODUCT USED FOR UNKNOWN INDICATION
     Dosage: 204 MG, UNK
     Route: 065
     Dates: start: 20160427, end: 20160429
  2. EXTERNAL-POSACONAZOLE [Suspect]
     Active Substance: POSACONAZOLE
     Indication: ANTIFUNGAL PROPHYLAXIS
     Dosage: 5 ML, TID
     Route: 048
     Dates: start: 20160422, end: 20160501
  3. EXTERNAL-CYTARABINE [Suspect]
     Active Substance: CYTARABINE
     Indication: PRODUCT USED FOR UNKNOWN INDICATION
     Dosage: 204 MG, QD
     Route: 065
     Dates: start: 20160427, end: 20160505
  4. EXTERNAL-IMIPENEM,CILASTATIN [Suspect]
     Active Substance: CILASTATIN SODIUM\IMIPENEM
     Indication: ANTIBIOTIC THERAPY
     Dosage: 500 MG, TID
     Route: 042
     Dates: start: 20160506, end: 20160510
  5. EXTERNAL-TRETINOIN [Suspect]
     Active Substance: TRETINOIN
     Indication: PRODUCT USED FOR UNKNOWN INDICATION
     Dosage: 30.6 MG, QD
     Route: 065
     Dates: start: 20160503, end: 20160512
  6. EXTERNAL-IDARUBICIN [Suspect]
     Active Substance: IDARUBICIN
     Indication: PRODUCT USED FOR UNKNOWN INDICATION
     Dosage: 24.48 MG, QD
     Route: 065
     Dates: start: 20160427, end: 20160501
  7. EXTERNAL-GEMTUZUMAB OZOGAMICIN [Suspect]
     Active Substance: GEMTUZUMAB OZOGAMICIN
     Indication: ACUTE MYELOID LEUKAEMIA
     Dosage: 6.12 MG, QD
     Route: 065
     Dates: start: 20160428, end: 20160428
  8. EXTERNAL-VANCOMYCIN [Suspect]
     Active Substance: VANCOMYCIN
     Indication: STAPHYLOCOCCAL INFECTION
     Dosage: 1 G, QD
     Route: 042
     Dates: start: 20160508, end: 20160512
  9. EXTERNAL-STRUCTOKABIVEN [Suspect]
     Active Substance: AMINO ACIDS\DEXTROSE\ELECTROLYTES NOS
     Indication: MALNUTRITION
     Dosage: UNK
     Route: 065
     Dates: start: 20160506, end: 20160513
  10. MIRTAZEPINE TEVA [Concomitant]
     Active Substance: MIRTAZAPINE
     Indication: DEPRESSION
     Dosage: UNK
     Route: 048
     Dates: start: 20160503, end: 20160514

REACTIONS (2)
  - Dermatitis exfoliative [Not Recovered/Not Resolved]
  - Hyperbilirubinaemia [Unknown]

NARRATIVE: CASE EVENT DATE: 20160508
